FAERS Safety Report 23263390 (Version 1)
Quarter: 2023Q4

REPORT INFORMATION
  Report Type: Spontaneous
  Country: US (occurrence: None)
  Receive Date: 20231204
  Receipt Date: 20231204
  Transmission Date: 20240109
  Serious: Yes (Hospitalization)
  Sender: FDA-Public Use
  Company Number: None

PATIENT
  Age: 71 Year
  Sex: Female
  Weight: 83 kg

DRUGS (1)
  1. HEPARIN SODIUM, PORCINE [Suspect]
     Active Substance: HEPARIN SODIUM
     Indication: Coagulopathy
     Dosage: FREQUENCY : ONCE;?
     Route: 040
     Dates: start: 20231120, end: 20231120

REACTIONS (6)
  - Blood pressure increased [None]
  - Heart rate increased [None]
  - Dyspnoea [None]
  - Dyspnoea [None]
  - Pulse absent [None]
  - Therapy cessation [None]

NARRATIVE: CASE EVENT DATE: 20231120
